FAERS Safety Report 6910369-1 (Version None)
Quarter: 2010Q3

REPORT INFORMATION
  Report Type: 
  Country: None (occurrence: None)
  Receive Date: 20100806
  Receipt Date: 20100802
  Transmission Date: 20110219
  Serious: Yes (Death)
  Sender: FDA-Public Use
  Company Number: JP-ASTRAZENECA-2010SE36117

PATIENT
  Sex: Male

DRUGS (2)
  1. CASODEX [Suspect]
     Indication: PROSTATE CANCER
     Route: 048
  2. ZOLADEX [Suspect]
     Indication: PROSTATE CANCER
     Dosage: DOSE UNKNOWN
     Route: 058

REACTIONS (1)
  - INTERSTITIAL LUNG DISEASE [None]
